FAERS Safety Report 8890436 (Version 1)
Quarter: 2012Q4

REPORT INFORMATION
  Report Type: 
  Country: US (occurrence: US)
  Receive Date: 20121106
  Receipt Date: 20121106
  Transmission Date: 20130627
  Serious: Yes (Hospitalization)
  Sender: FDA-Public Use
  Company Number: US-ARROW-2012-18983

PATIENT
  Age: 34 Year
  Sex: Female

DRUGS (4)
  1. ZOLPIDEM TARTRATE [Suspect]
     Indication: INTENTIONAL OVERDOSE
     Dosage: 600 mg, single
     Route: 048
  2. LORAZEPAM [Suspect]
     Indication: INTENTIONAL OVERDOSE
     Dosage: 120 mg, single
     Route: 048
  3. FENTANYL (UNKNOWN) [Suspect]
     Indication: INTENTIONAL OVERDOSE
     Dosage: 11 patches
     Route: 062
  4. OXYCODONE [Suspect]
     Indication: INTENTIONAL OVERDOSE
     Dosage: 1450 mg, single
     Route: 048

REACTIONS (2)
  - Stress cardiomyopathy [Recovered/Resolved]
  - Intentional overdose [Recovered/Resolved]
